FAERS Safety Report 6399001-6 (Version None)
Quarter: 2009Q4

REPORT INFORMATION
  Report Type: 
  Country: None (occurrence: None)
  Receive Date: 20091013
  Receipt Date: 20091001
  Transmission Date: 20100525
  Serious: Yes (Other)
  Sender: FDA-Public Use
  Company Number: BR-PFIZER INC-2009276801

PATIENT
  Age: 41 Year

DRUGS (5)
  1. FRONTAL XR [Suspect]
     Indication: ANXIETY
     Dosage: 1 MG, 1X/DAY
     Route: 048
     Dates: start: 20080101, end: 20080101
  2. FRONTAL XR [Suspect]
     Indication: SLEEP DISORDER
  3. FRONTAL XR [Suspect]
     Indication: PANIC DISORDER
  4. ZOLOFT [Concomitant]
     Dosage: UNK
  5. BEROTEC [Concomitant]
     Dosage: UNK

REACTIONS (2)
  - NEPHRECTOMY [None]
  - WEIGHT INCREASED [None]
